FAERS Safety Report 8909148 (Version 1)
Quarter: 2012Q4

REPORT INFORMATION
  Report Type: 
  Country: US (occurrence: US)
  Receive Date: 20121113
  Receipt Date: 20121113
  Transmission Date: 20130627
  Serious: No
  Sender: FDA-Public Use
  Company Number: US-AMGEN-USASP2012011422

PATIENT
  Age: 37 Year
  Sex: Female
  Weight: 60.77 kg

DRUGS (2)
  1. ENBREL [Suspect]
     Indication: PRODUCT USED FOR UNKNOWN INDICATION
     Dosage: 25 mg, 2 times/wk
     Route: 058
     Dates: start: 20100903
  2. ACIDOPHILUS JURA N [Concomitant]

REACTIONS (1)
  - Injection site pain [Unknown]
